FAERS Safety Report 15275944 (Version 1)
Quarter: 2018Q3

REPORT INFORMATION
  Report Type: Spontaneous
  Country: RO (occurrence: RO)
  Receive Date: 20180814
  Receipt Date: 20180814
  Transmission Date: 20181010
  Serious: Yes (Hospitalization, Other)
  Sender: FDA-Public Use
  Company Number: PHHY2018RO072063

PATIENT
  Age: 14 Year
  Sex: Female

DRUGS (4)
  1. AMOXICILLIN AND CLAVULANATE POTASSIUM [Suspect]
     Active Substance: AMOXICILLIN\CLAVULANATE POTASSIUM
     Indication: PYREXIA
  2. AMOXICILLIN AND CLAVULANATE POTASSIUM [Suspect]
     Active Substance: AMOXICILLIN\CLAVULANATE POTASSIUM
     Indication: DIARRHOEA
  3. AMOXICILLIN AND CLAVULANATE POTASSIUM [Suspect]
     Active Substance: AMOXICILLIN\CLAVULANATE POTASSIUM
     Indication: CHILLS
  4. AMOXICILLIN AND CLAVULANATE POTASSIUM [Suspect]
     Active Substance: AMOXICILLIN\CLAVULANATE POTASSIUM
     Indication: ABDOMINAL PAIN
     Dosage: UNK
     Route: 065

REACTIONS (9)
  - Pneumonia [Unknown]
  - Oral candidiasis [Unknown]
  - Drug hypersensitivity [Unknown]
  - Lymphadenopathy [Unknown]
  - Gastroenteritis salmonella [Unknown]
  - Acidosis [Unknown]
  - Deficiency anaemia [Unknown]
  - Drug ineffective [Unknown]
  - Enterocolitis [Unknown]
